FAERS Safety Report 14841775 (Version 3)
Quarter: 2019Q1

REPORT INFORMATION
  Report Type: Report from Study
  Country: US (occurrence: US)
  Receive Date: 20180503
  Receipt Date: 20190116
  Transmission Date: 20190417
  Serious: Yes (Hospitalization, Other)
  Sender: FDA-Public Use
  Company Number: US-SA-2018SA032511

PATIENT
  Age: 46 Year
  Sex: Female

DRUGS (1)
  1. LEMTRADA [Suspect]
     Active Substance: ALEMTUZUMAB
     Indication: MULTIPLE SCLEROSIS
     Dosage: 12 MG,QD
     Route: 041
     Dates: start: 20171016, end: 20171020

REACTIONS (15)
  - CD4 lymphocytes decreased [Not Recovered/Not Resolved]
  - Ill-defined disorder [Not Recovered/Not Resolved]
  - Peripheral swelling [Recovered/Resolved]
  - Mass [Not Recovered/Not Resolved]
  - Lymphadenopathy [Recovered/Resolved]
  - Neutropenia [Recovered/Resolved]
  - Multiple sclerosis relapse [Recovered/Resolved]
  - Flushing [Not Recovered/Not Resolved]
  - Nocardiosis [Recovered/Resolved]
  - T-lymphocyte count decreased [Not Recovered/Not Resolved]
  - Skin warm [Recovered/Resolved]
  - Urinary tract infection [Recovered/Resolved]
  - Pyrexia [Recovered/Resolved]
  - Erythema [Recovered/Resolved]
  - Condition aggravated [Recovered/Resolved]

NARRATIVE: CASE EVENT DATE: 201710
